FAERS Safety Report 11109873 (Version 1)
Quarter: 2015Q2

REPORT INFORMATION
  Report Type: Spontaneous
  Country: US (occurrence: None)
  Receive Date: 20150512
  Receipt Date: 20150512
  Transmission Date: 20150821
  Serious: No
  Sender: FDA-Public Use
  Company Number: None

PATIENT
  Age: 60 Year
  Sex: Male

DRUGS (1)
  1. ZYTIGA [Suspect]
     Active Substance: ABIRATERONE ACETATE
     Indication: PROSTATE CANCER
     Route: 048
     Dates: start: 20150105, end: 20150507

REACTIONS (4)
  - Insomnia [None]
  - Photopsia [None]
  - Weight increased [None]
  - Hot flush [None]

NARRATIVE: CASE EVENT DATE: 20150430
